FAERS Safety Report 5199010-9 (Version None)
Quarter: 2006Q4

REPORT INFORMATION
  Report Type: 
  Country: None (occurrence: None)
  Receive Date: 20061016
  Receipt Date: 20060731
  Transmission Date: 20070319
  Serious: No
  Sender: FDA-Public Use
  Company Number: 2006SP002854

PATIENT
  Age: 78 Year
  Sex: Female
  Weight: 81.6475 kg

DRUGS (7)
  1. LUNESTA [Suspect]
     Indication: PERONEAL MUSCULAR ATROPHY
     Dosage: 3 MG; UNKNOWN; ORAL
     Route: 048
     Dates: start: 20060101
  2. ALEVE [Concomitant]
  3. LOVASTATIN [Concomitant]
  4. LOTREL [Concomitant]
  5. ZIAC [Concomitant]
  6. VALSARTAN [Concomitant]
  7. METFORMIN HCL [Concomitant]

REACTIONS (1)
  - INSOMNIA [None]
